FAERS Safety Report 9326186 (Version 1)
Quarter: 2013Q2

REPORT INFORMATION
  Report Type: Spontaneous
  Country: US (occurrence: US)
  Receive Date: 20130604
  Receipt Date: 20130604
  Transmission Date: 20140414
  Serious: Yes (Hospitalization, Other)
  Sender: FDA-Public Use
  Company Number: US-PFIZER INC-2013166968

PATIENT
  Sex: Male

DRUGS (1)
  1. EFFEXOR [Suspect]
     Dosage: UNK

REACTIONS (5)
  - Suicide attempt [Recovering/Resolving]
  - Drug dependence [Recovering/Resolving]
  - Aggression [Recovering/Resolving]
  - Homicidal ideation [Recovering/Resolving]
  - Legal problem [Unknown]
